FAERS Safety Report 11320508 (Version 1)
Quarter: 2015Q3

REPORT INFORMATION
  Report Type: Spontaneous
  Country: US (occurrence: US)
  Receive Date: 20150729
  Receipt Date: 20150729
  Transmission Date: 20151125
  Serious: No
  Sender: FDA-Public Use
  Company Number: US-BAUSCH-BL-2015-014667

PATIENT
  Age: 44 Year
  Sex: Male

DRUGS (2)
  1. DIOVAN HCT 80 [Concomitant]
     Indication: HYPERTENSION
     Dosage: 1 TABLET DAILY
     Route: 048
  2. OPCON-A [Suspect]
     Active Substance: NAPHAZOLINE HYDROCHLORIDE\PHENIRAMINE MALEATE
     Indication: EYE ALLERGY
     Dosage: 1 DROP INTO RIGHT EYE
     Route: 047
     Dates: start: 20150601, end: 20150601

REACTIONS (3)
  - Photophobia [Not Recovered/Not Resolved]
  - Vision blurred [Not Recovered/Not Resolved]
  - Mydriasis [Not Recovered/Not Resolved]

NARRATIVE: CASE EVENT DATE: 20150601
